FAERS Safety Report 7138626-7 (Version None)
Quarter: 2010Q4

REPORT INFORMATION
  Report Type: 
  Country: None (occurrence: None)
  Receive Date: 20101206
  Receipt Date: 20101126
  Transmission Date: 20110411
  Serious: Yes (Other)
  Sender: FDA-Public Use
  Company Number: JP-ASTRAZENECA-2010SE56821

PATIENT
  Sex: Female

DRUGS (1)
  1. AMIAS [Suspect]
     Indication: HYPERTENSION
     Route: 048

REACTIONS (1)
  - HYPOTENSION [None]
